FAERS Safety Report 21379803 (Version 2)
Quarter: 2022Q4

REPORT INFORMATION
  Report Type: Spontaneous
  Country: JP (occurrence: JP)
  Receive Date: 20220927
  Receipt Date: 20221003
  Transmission Date: 20230113
  Serious: Yes (Hospitalization, Other)
  Sender: FDA-Public Use
  Company Number: JP-GLAXOSMITHKLINE-JP2022JPN134607

PATIENT

DRUGS (13)
  1. VALTREX [Suspect]
     Active Substance: VALACYCLOVIR HYDROCHLORIDE
     Indication: Herpes zoster
     Dosage: 1000 MG, TID
     Route: 048
     Dates: start: 20211005, end: 20211006
  2. TELMISARTAN [Suspect]
     Active Substance: TELMISARTAN
     Dosage: UNK
  3. LOXOPROFEN SODIUM [Suspect]
     Active Substance: LOXOPROFEN SODIUM
     Dosage: UNK
  4. PREGABALIN [Concomitant]
     Active Substance: PREGABALIN
     Indication: Herpes zoster
     Dosage: 50 MG
     Dates: start: 20211005, end: 20211006
  5. LANSOPRAZOLE [Concomitant]
     Active Substance: LANSOPRAZOLE
     Dosage: UNK
  6. REBAMIPIDE [Concomitant]
     Active Substance: REBAMIPIDE
     Dosage: UNK
  7. MYSLEE TABLETS [Concomitant]
     Dosage: UNK
  8. HERBALS [Concomitant]
     Active Substance: HERBALS
     Dosage: UNK
  9. TULOBUTEROL [Concomitant]
     Active Substance: TULOBUTEROL
     Dosage: UNK
  10. OLOPATADINE HYDROCHLORIDE OD TABLETS [Concomitant]
     Dosage: UNK
  11. BETANIS TABLETS [Concomitant]
     Dosage: UNK
  12. MAGNESIUM OXIDE [Concomitant]
     Active Substance: MAGNESIUM OXIDE
     Dosage: UNK
  13. VIDARABINE OINTMENT [Concomitant]
     Dosage: UNK

REACTIONS (8)
  - Toxic encephalopathy [Recovered/Resolved]
  - Acute kidney injury [Recovered/Resolved]
  - Immobile [Unknown]
  - Azotaemia [Unknown]
  - Altered state of consciousness [Recovering/Resolving]
  - Speech disorder [Unknown]
  - Abnormal behaviour [Unknown]
  - Prescribed overdose [Unknown]

NARRATIVE: CASE EVENT DATE: 20211007
